FAERS Safety Report 23878296 (Version 3)
Quarter: 2024Q2

REPORT INFORMATION
  Report Type: Spontaneous
  Country: JP (occurrence: JP)
  Receive Date: 20240521
  Receipt Date: 20240611
  Transmission Date: 20240716
  Serious: Yes (Hospitalization, Other)
  Sender: FDA-Public Use
  Company Number: JP-GSKJP-JP2024JPN062622AA

PATIENT

DRUGS (10)
  1. DAPRODUSTAT [Suspect]
     Active Substance: DAPRODUSTAT
     Indication: Nephrogenic anaemia
     Dosage: 4 MG
     Dates: start: 20240426, end: 20240515
  2. ACETAMINOPHEN [Concomitant]
     Active Substance: ACETAMINOPHEN
     Dosage: 300 MG, TID (AFTER BREAKFAST, LUNCH AND SUPPER)
     Route: 048
  3. NIFEDIPINE [Concomitant]
     Active Substance: NIFEDIPINE
     Dosage: 40 MG, BID (AFTER BREAKFAST AND SUPPER)
  4. INDAPAMIDE [Concomitant]
     Active Substance: INDAPAMIDE
     Dosage: 1 MG, 1D (AFTER BREAKFAST)
  5. ISOSORBIDE DINITRATE [Concomitant]
     Active Substance: ISOSORBIDE DINITRATE
     Dosage: 40 MG, BID (AFTER BREAKFAST AND SUPPER)
  6. SENNOSIDES [Concomitant]
     Active Substance: SENNOSIDES
     Dosage: 24 MG, 1D (BEFORE BEDTIME)
     Route: 048
  7. SODIUM FERROUS CITRATE [Concomitant]
     Active Substance: SODIUM FERROUS CITRATE
     Dosage: 200 MG, TID (AFTER BREAKFAST, LUNCH AND SUPPER)
     Route: 048
  8. KREMEZIN [Concomitant]
     Active Substance: ACTIVATED CHARCOAL
     Dosage: 6000 MG, TID (AT 10:00, 14:00 AND 20:00)
     Route: 048
  9. DOXAZOSIN MESYLATE [Concomitant]
     Active Substance: DOXAZOSIN MESYLATE
     Dosage: 2 MG, 1D (BEFORE BEDTIME)
     Dates: start: 20240415, end: 20240515
  10. VADADUSTAT [Concomitant]
     Active Substance: VADADUSTAT
     Indication: Nephrogenic anaemia
     Dosage: UNK, 1D
     Dates: start: 202403, end: 20240425

REACTIONS (1)
  - Pneumonia [Recovering/Resolving]

NARRATIVE: CASE EVENT DATE: 20240507
